FAERS Safety Report 8585419 (Version 2)
Quarter: 2012Q4

REPORT INFORMATION
  Report Type: 
  Country: CA (occurrence: CA)
  Receive Date: 20120530
  Receipt Date: 20121001
  Transmission Date: 20130627
  Serious: Yes (Hospitalization)
  Sender: FDA-Public Use
  Company Number: CA-JNJFOC-20120516930

PATIENT
  Age: 57 Year
  Sex: Male
  Weight: 113.6 kg

DRUGS (7)
  1. REMICADE [Suspect]
     Indication: RHEUMATOID ARTHRITIS
     Dosage: loading dose
     Route: 042
     Dates: start: 20120404, end: 20120626
  2. PLAQUENIL [Concomitant]
     Route: 065
  3. SYNTHROID [Concomitant]
     Route: 065
  4. LOSEC [Concomitant]
     Route: 065
  5. COSAAR [Concomitant]
     Route: 065
  6. PREDNISONE [Concomitant]
     Route: 065
  7. IRON SUPPLEMENTS [Concomitant]
     Route: 065

REACTIONS (4)
  - Chronic obstructive pulmonary disease [Unknown]
  - Lung infection [Unknown]
  - Infection [Unknown]
  - Drug ineffective [Unknown]
